FAERS Safety Report 21509189 (Version 1)
Quarter: 2022Q4

REPORT INFORMATION
  Report Type: Report from Study
  Country: CA (occurrence: CA)
  Receive Date: 20221026
  Receipt Date: 20221026
  Transmission Date: 20230112
  Serious: Yes (Hospitalization)
  Sender: FDA-Public Use
  Company Number: CA-AMGEN-CANSL2022180834

PATIENT
  Sex: Male

DRUGS (1)
  1. AVSOLA [Suspect]
     Active Substance: INFLIXIMAB-AXXQ
     Indication: Rheumatoid arthritis
     Dosage: 400 MILLIGRAM, Q6WK
     Route: 065
     Dates: start: 20220210

REACTIONS (2)
  - SARS-CoV-2 test positive [Unknown]
  - Staphylococcal infection [Unknown]
